FAERS Safety Report 17354111 (Version 1)
Quarter: 2020Q1

REPORT INFORMATION
  Report Type: Spontaneous
  Country: SE (occurrence: SE)
  Receive Date: 20200131
  Receipt Date: 20200131
  Transmission Date: 20200409
  Serious: Yes (Hospitalization)
  Sender: FDA-Public Use
  Company Number: SE-MYLANLABS-2020M1010902

PATIENT
  Age: 16 Year
  Sex: Female

DRUGS (2)
  1. IPREN [Suspect]
     Active Substance: IBUPROFEN
     Indication: PRODUCT USED FOR UNKNOWN INDICATION
     Dosage: 400 MILLIGRAM
     Route: 048
     Dates: start: 20181009, end: 20181009
  2. LERGIGAN (PROMETHAZINE) [Suspect]
     Active Substance: PROMETHAZINE HYDROCHLORIDE
     Indication: PRODUCT USED FOR UNKNOWN INDICATION
     Dosage: ^15 ST LERGIGAN 25 OCH 5 MG^
     Route: 048
     Dates: start: 20181009, end: 20181009

REACTIONS (6)
  - Intentional overdose [Unknown]
  - Tachycardia [Unknown]
  - Nausea [Unknown]
  - Anxiety [Unknown]
  - Intentional self-injury [Unknown]
  - Palpitations [Unknown]

NARRATIVE: CASE EVENT DATE: 20181009
